FAERS Safety Report 9531216 (Version 1)
Quarter: 2013Q3

REPORT INFORMATION
  Report Type: Spontaneous
  Country: US (occurrence: None)
  Receive Date: 20130916
  Receipt Date: 20130916
  Transmission Date: 20140515
  Serious: No
  Sender: FDA-Public Use
  Company Number: None

PATIENT
  Age: 54 Year
  Sex: Male

DRUGS (5)
  1. ECONAZOLE NITRATE [Suspect]
     Dosage: 1%
     Route: 061
     Dates: start: 20130903, end: 20130916
  2. SIMVASTATIN [Concomitant]
  3. VENLAFAXINE [Concomitant]
  4. CPAP MACHINE [Concomitant]
  5. JANUVIA [Concomitant]

REACTIONS (2)
  - Application site irritation [None]
  - Pruritus [None]
